FAERS Safety Report 11496986 (Version 2)
Quarter: 2015Q3

REPORT INFORMATION
  Report Type: Spontaneous
  Country: US (occurrence: US)
  Receive Date: 20150911
  Receipt Date: 20150925
  Transmission Date: 20151125
  Serious: Yes (Other)
  Sender: FDA-Public Use
  Company Number: US-BAYER-2015-418208

PATIENT
  Age: 43 Year
  Sex: Female

DRUGS (3)
  1. MIRENA [Suspect]
     Active Substance: LEVONORGESTREL
     Indication: GENITAL HAEMORRHAGE
     Dosage: 20 MCG/24HR, CONT
     Route: 015
     Dates: start: 20150707, end: 201509
  2. CALCIUM [Concomitant]
     Active Substance: CALCIUM
  3. PRENATAL VITAMINS [Concomitant]
     Active Substance: VITAMINS

REACTIONS (3)
  - Alopecia [Not Recovered/Not Resolved]
  - Nail disorder [None]
  - Device use error [None]

NARRATIVE: CASE EVENT DATE: 201507
